FAERS Safety Report 8775084 (Version 3)
Quarter: 2012Q4

REPORT INFORMATION
  Report Type: 
  Country: FR (occurrence: FR)
  Receive Date: 20120910
  Receipt Date: 20120924
  Transmission Date: 20130627
  Serious: Yes (Hospitalization, Disabling)
  Sender: FDA-Public Use
  Company Number: FR-JNJFOC-20120814881

PATIENT
  Sex: Female

DRUGS (10)
  1. DUROGESIC [Suspect]
     Indication: BACK PAIN
     Route: 062
     Dates: end: 20120418
  2. SEROPLEX [Suspect]
     Indication: DEPRESSION
     Dosage: 2 tablets a day
     Route: 048
     Dates: start: 201101, end: 20120418
  3. INEXIUM [Interacting]
     Indication: GASTRITIS
     Dosage: long term
     Route: 048
     Dates: start: 201109
  4. HYDROCORTISONE [Concomitant]
     Indication: ADRENAL INSUFFICIENCY
     Dosage: long-term
     Route: 048
  5. LEVOTHYROX [Concomitant]
     Indication: SECONDARY HYPOTHYROIDISM
     Dosage: long-term
     Route: 048
  6. SERESTA [Concomitant]
     Indication: DEPRESSION
     Dosage: long-term
     Route: 048
  7. ZOLPIDEM [Concomitant]
     Indication: INSOMNIA
     Dosage: long-term
     Route: 048
  8. PARKINANE LP [Concomitant]
     Indication: EXTRAPYRAMIDAL DISORDER
     Route: 048
     Dates: start: 201107, end: 20120424
  9. MOVICOL [Concomitant]
     Indication: PRODUCT USED FOR UNKNOWN INDICATION
     Route: 065
  10. PARAFFIN, LIQUID [Concomitant]
     Indication: PRODUCT USED FOR UNKNOWN INDICATION
     Route: 065

REACTIONS (6)
  - Extrapyramidal disorder [Recovered/Resolved with Sequelae]
  - Depression [Not Recovered/Not Resolved]
  - Cognitive disorder [Recovering/Resolving]
  - Fall [Recovered/Resolved]
  - Drug interaction [Unknown]
  - General physical health deterioration [Unknown]
